FAERS Safety Report 6525929-X (Version None)
Quarter: 2010Q1

REPORT INFORMATION
  Report Type: 
  Country: None (occurrence: None)
  Receive Date: 20100104
  Receipt Date: 20091229
  Transmission Date: 20100710
  Serious: Yes (Other)
  Sender: FDA-Public Use
  Company Number: US-PFIZER INC-2009261293

PATIENT
  Sex: Male
  Weight: 102.05 kg

DRUGS (5)
  1. CHANTIX [Suspect]
     Indication: SMOKING CESSATION THERAPY
     Dosage: 0.5 MG, 1X/DAY
     Route: 048
     Dates: start: 20090802, end: 20091002
  2. TRIAMCINOLONE ACETONIDE [Concomitant]
     Indication: SKIN LESION
  3. HYDROCODONE [Concomitant]
     Indication: HIP ARTHROPLASTY
  4. CLARITIN [Concomitant]
     Indication: RHINORRHOEA
  5. VITAMINS [Concomitant]

REACTIONS (4)
  - DEPRESSED MOOD [None]
  - HOMICIDAL IDEATION [None]
  - PERSONALITY CHANGE [None]
  - VIOLENCE-RELATED SYMPTOM [None]
